FAERS Safety Report 5917031-2 (Version None)
Quarter: 2008Q4

REPORT INFORMATION
  Report Type: 
  Country: None (occurrence: None)
  Receive Date: 20081009
  Receipt Date: 20081009
  Transmission Date: 20090506
  Serious: No
  Sender: FDA-Public Use
  Company Number: None

PATIENT
  Age: 66 Year
  Sex: Male
  Weight: 86.1834 kg

DRUGS (1)
  1. AVODART [Suspect]
     Indication: BENIGN PROSTATIC HYPERPLASIA
     Dosage: ONE PER DAY PO
     Route: 048
     Dates: start: 20080401, end: 20080801

REACTIONS (2)
  - GYNAECOMASTIA [None]
  - NIPPLE PAIN [None]
